FAERS Safety Report 9720456 (Version 3)
Quarter: 2014Q1

REPORT INFORMATION
  Report Type: Spontaneous
  Country: US (occurrence: US)
  Receive Date: 20131129
  Receipt Date: 20140211
  Transmission Date: 20141002
  Serious: No
  Sender: FDA-Public Use
  Company Number: US-009507513-1311USA009356

PATIENT
  Age: 20 Year
  Sex: Female
  Weight: 82.86 kg

DRUGS (2)
  1. IMPLANON [Suspect]
     Dosage: UNK
     Route: 059
     Dates: start: 2010
  2. NEXPLANON [Suspect]
     Dosage: UNK
     Route: 059
     Dates: start: 20131017

REACTIONS (6)
  - Device difficult to use [Unknown]
  - Medical device complication [Unknown]
  - Overdose [Unknown]
  - No adverse event [Unknown]
  - Incorrect drug administration duration [Unknown]
  - Device deployment issue [Recovering/Resolving]
